FAERS Safety Report 4284017-6 (Version None)
Quarter: 2004Q1

REPORT INFORMATION
  Report Type: 
  Country: None (occurrence: None)
  Receive Date: 20040130
  Receipt Date: 20040116
  Transmission Date: 20041129
  Serious: Yes (Other)
  Sender: FDA-Public Use
  Company Number: 2004-01-1135

PATIENT
  Age: 16 Year
  Sex: Female
  Weight: 56.6996 kg

DRUGS (4)
  1. CORICIDIN [Suspect]
     Dosage: ORAL
     Route: 048
  2. ALCOHOL [Concomitant]
  3. MARIJUANA [Concomitant]
  4. WELLBUTRIN [Concomitant]

REACTIONS (8)
  - ALCOHOL USE [None]
  - ASTHMA [None]
  - CONFUSIONAL STATE [None]
  - DEPRESSION [None]
  - DRUG ABUSER [None]
  - FEELING ABNORMAL [None]
  - OVERDOSE [None]
  - SOMNOLENCE [None]
